FAERS Safety Report 20438190 (Version 3)
Quarter: 2022Q1

REPORT INFORMATION
  Report Type: Report from Study
  Country: US (occurrence: US)
  Receive Date: 20220207
  Receipt Date: 20220304
  Transmission Date: 20220423
  Serious: Yes (Death, Hospitalization, Other)
  Sender: FDA-Public Use
  Company Number: US-GLAXOSMITHKLINE-US2021194113

PATIENT
  Age: 84 Year
  Sex: Female

DRUGS (16)
  1. NIRAPARIB [Suspect]
     Active Substance: NIRAPARIB
     Indication: Malignant peritoneal neoplasm
     Dosage: 100 MG, QD (100MG Q PM)
     Route: 048
     Dates: start: 20210910
  2. NIRAPARIB [Suspect]
     Active Substance: NIRAPARIB
     Dosage: 100 MG, QD
  3. NIRAPARIB [Suspect]
     Active Substance: NIRAPARIB
     Dosage: 200 MG, QD
     Route: 048
     Dates: start: 20211018
  4. NIRAPARIB [Suspect]
     Active Substance: NIRAPARIB
     Dosage: 200 MG, QD
     Route: 048
     Dates: end: 20211031
  5. NIRAPARIB [Suspect]
     Active Substance: NIRAPARIB
     Dosage: 100MG DAILY PM SOMETIMES WITH AND WITH OUT FOOD
     Route: 048
     Dates: start: 20220117
  6. SENNA [Concomitant]
     Active Substance: SENNA LEAF\SENNOSIDES\SENNOSIDES A AND B
     Indication: Product used for unknown indication
     Dosage: 8.6 MG PRN
  7. NORCO [Concomitant]
     Active Substance: ACETAMINOPHEN\HYDROCODONE BITARTRATE
     Indication: Product used for unknown indication
     Dosage: UNK UNK, BID (5-325MG BID PRN)
  8. ELIQUIS [Concomitant]
     Active Substance: APIXABAN
     Indication: Product used for unknown indication
     Dosage: 5 MG, BID
  9. LEVOTHYROXINE SODIUM [Concomitant]
     Active Substance: LEVOTHYROXINE SODIUM
     Indication: Product used for unknown indication
     Dosage: 50 UG, QD
  10. METOPROLOL SUCCINATE [Concomitant]
     Active Substance: METOPROLOL SUCCINATE
     Indication: Product used for unknown indication
     Dosage: 25 MG, BID
  11. MIDODRINE HYDROCHLORIDE [Concomitant]
     Active Substance: MIDODRINE HYDROCHLORIDE
     Indication: Product used for unknown indication
     Dosage: 5 MG, QD
  12. ROSUVASTATIN CALCIUM [Concomitant]
     Active Substance: ROSUVASTATIN CALCIUM
     Indication: Product used for unknown indication
     Dosage: 20 MG, QD
  13. NITROFURANTOIN MACROCRYSTALS [Concomitant]
     Active Substance: NITROFURANTOIN
     Indication: Product used for unknown indication
     Dosage: 50 MG, QD
  14. ENULOSE [Concomitant]
     Active Substance: LACTULOSE
     Indication: Product used for unknown indication
     Dosage: 10GM/15ML, PRN
  15. MIRALAX [Concomitant]
     Active Substance: POLYETHYLENE GLYCOL 3350
     Indication: Product used for unknown indication
     Dosage: 17 GM DAILY
  16. FLEET ENEMA RECTAL (SODIUM PHOSPHATE) [Concomitant]
     Indication: Product used for unknown indication
     Dosage: PRN

REACTIONS (20)
  - Death [Fatal]
  - Intestinal obstruction [Unknown]
  - Constipation [Not Recovered/Not Resolved]
  - Malignant neoplasm progression [Unknown]
  - Metastases to abdominal cavity [Unknown]
  - Insomnia [Recovering/Resolving]
  - Blood pressure increased [Recovering/Resolving]
  - Chills [Not Recovered/Not Resolved]
  - Somnolence [Recovering/Resolving]
  - Pain [Not Recovered/Not Resolved]
  - Gait inability [Unknown]
  - Asthenia [Not Recovered/Not Resolved]
  - Fatigue [Not Recovered/Not Resolved]
  - Urinary incontinence [Not Recovered/Not Resolved]
  - Anal incontinence [Not Recovered/Not Resolved]
  - Nausea [Unknown]
  - Dysuria [Unknown]
  - Hospice care [Not Recovered/Not Resolved]
  - Product dose omission in error [Unknown]
  - Off label use [Not Recovered/Not Resolved]

NARRATIVE: CASE EVENT DATE: 20210901
